FAERS Safety Report 19767174 (Version 2)
Quarter: 2021Q3

REPORT INFORMATION
  Report Type: Spontaneous
  Country: JP (occurrence: JP)
  Receive Date: 20210830
  Receipt Date: 20210921
  Transmission Date: 20211014
  Serious: Yes (Hospitalization)
  Sender: FDA-Public Use
  Company Number: JP-ALLERGAN-2130291US

PATIENT
  Sex: Female

DRUGS (14)
  1. GALANTAMINE. [Concomitant]
     Active Substance: GALANTAMINE
     Dosage: UNK
     Dates: start: 201912
  2. RHEUMATREX [Concomitant]
     Active Substance: METHOTREXATE SODIUM
     Dosage: UNK
     Dates: end: 20210319
  3. CELECOXIB. [Concomitant]
     Active Substance: CELECOXIB
     Indication: RHEUMATIC DISORDER
     Dosage: 2 TABLETS AFTER BREAKFAST AND DINNER
     Dates: start: 20210402
  4. MEMANTINE HCL ? BP [Suspect]
     Active Substance: MEMANTINE
     Indication: DEMENTIA
     Dosage: 10 MG, QD
     Route: 048
     Dates: start: 202102
  5. PEROSPIRONE HCL [Concomitant]
     Active Substance: PEROSPIRONE HYDROCHLORIDE
     Dosage: 4 MG, QD
  6. LOXOPROFEN SODIUM HYDRATE [Concomitant]
     Active Substance: LOXOPROFEN SODIUM DIHYDRATE
     Indication: RHEUMATIC DISORDER
     Dosage: 100 MG 35 SHEETS
     Dates: start: 20210402
  7. ELIQUIS [Concomitant]
     Active Substance: APIXABAN
     Dosage: 2 TABLETS AFTER BREAKFAST AND DINNER
     Dates: start: 20210319
  8. FOLIAMIN [FOLIC ACID] [Concomitant]
     Active Substance: FOLIC ACID
     Dosage: UNK
     Dates: end: 20210319
  9. ROSUVASTATIN CALCIUM. [Concomitant]
     Active Substance: ROSUVASTATIN CALCIUM
     Dosage: UNK
  10. TRAZODONE HYDROCHLORIDE. [Concomitant]
     Active Substance: TRAZODONE HYDROCHLORIDE
     Dosage: 1 DF, QD
  11. SODIUM FERROUS CITRATE [Concomitant]
     Active Substance: SODIUM FERROUS CITRATE
     Dosage: 2 TABLETS AFTER BREAKFAST
     Dates: start: 20210319
  12. AZULFIDINE [Concomitant]
     Active Substance: SULFASALAZINE
  13. MEMANTINE HCL ? BP [Suspect]
     Active Substance: MEMANTINE
     Dosage: 20 MG, QD
     Route: 048
     Dates: start: 20190228, end: 202101
  14. CALBLOCK [Concomitant]
     Active Substance: AZELNIDIPINE
     Dosage: UNK

REACTIONS (1)
  - Gastric cancer [Not Recovered/Not Resolved]

NARRATIVE: CASE EVENT DATE: 202102
